FAERS Safety Report 19787404 (Version 2)
Quarter: 2021Q3

REPORT INFORMATION
  Report Type: Report from Study
  Country: DE (occurrence: DE)
  Receive Date: 20210903
  Receipt Date: 20210914
  Transmission Date: 20211014
  Serious: Yes (Death, Hospitalization)
  Sender: FDA-Public Use
  Company Number: DE-GLAXOSMITHKLINE-DE2021169208

PATIENT
  Age: 55 Year
  Sex: Male
  Weight: 63.5 kg

DRUGS (15)
  1. DENOSUMAB [Concomitant]
     Active Substance: DENOSUMAB
     Indication: METASTASES TO BONE
     Dosage: 120 MG (FREQUENCY = EVERY MONTH)
     Route: 058
     Dates: start: 20210629
  2. DOSTARLIMAB [Suspect]
     Active Substance: DOSTARLIMAB
     Indication: NON-SMALL CELL LUNG CANCER
     Dosage: DOSE AT CYCLE 1 ? DAY 1
     Dates: start: 20210701, end: 20210701
  3. SYMBICORT [Concomitant]
     Active Substance: BUDESONIDE\FORMOTEROL FUMARATE DIHYDRATE
     Indication: DYSPNOEA
     Dosage: 160/4.5 MG BID
     Route: 055
     Dates: start: 202106
  4. PEMETREXED. [Suspect]
     Active Substance: PEMETREXED
     Dosage: DOSE AT DAY 1
     Route: 042
     Dates: start: 20210722, end: 20210722
  5. TRAVATAN [Concomitant]
     Active Substance: TRAVOPROST
     Indication: GLAUCOMA
     Dosage: 1 DF, QD
     Route: 031
     Dates: start: 2011
  6. DEXAMETHASON [Concomitant]
     Active Substance: DEXAMETHASONE
     Dosage: 8 MG (FREQUENCY = OTHER: EVERY THREE WEEKS ON DAY OF CHEMOTHERAPY)
     Route: 042
     Dates: start: 20210701
  7. NOVALGIN(METAMIZOL) [Concomitant]
     Indication: NECK PAIN
     Dosage: 500 MG (FREQUENCY = AS NEEDED)
     Route: 048
     Dates: start: 20210802
  8. CARBOPLATIN (NON?GSK COMPARATOR) [Suspect]
     Active Substance: CARBOPLATIN
     Dosage: DOSE AT DAY 1
     Route: 042
     Dates: start: 20210722, end: 20210722
  9. PANTOPRAZOL [Concomitant]
     Active Substance: PANTOPRAZOLE SODIUM
     Indication: GASTRITIS PROPHYLAXIS
     Dosage: 40 MG, QD
     Route: 048
     Dates: start: 202105
  10. DEXAMETHASON [Concomitant]
     Active Substance: DEXAMETHASONE
     Indication: CHEMOTHERAPY SIDE EFFECT PROPHYLAXIS
     Dosage: 4 MG, BID
     Route: 048
     Dates: start: 20210630
  11. DOSTARLIMAB [Suspect]
     Active Substance: DOSTARLIMAB
     Dosage: DOSE AT DAY 1
     Dates: start: 20210722, end: 20210722
  12. PEMETREXED. [Suspect]
     Active Substance: PEMETREXED
     Indication: NON-SMALL CELL LUNG CANCER
     Dosage: DOSE AT CYCLE 1 ? DAY 1
     Route: 042
     Dates: start: 20210701, end: 20210701
  13. CARBOPLATIN (NON?GSK COMPARATOR) [Suspect]
     Active Substance: CARBOPLATIN
     Indication: NON-SMALL CELL LUNG CANCER
     Dosage: DOSE AT CYCLE 1 ? DAY 1
     Route: 042
     Dates: start: 20210701, end: 20210701
  14. PROSTAGUTT FORTE [Concomitant]
     Active Substance: HERBALS
     Indication: BENIGN PROSTATIC HYPERPLASIA
     Dosage: 160/120 MG QD
     Route: 048
     Dates: start: 2020
  15. IBUPROFEN. [Concomitant]
     Active Substance: IBUPROFEN
     Dosage: UNK
     Dates: start: 20210722, end: 20210801

REACTIONS (1)
  - Pneumonitis [Fatal]

NARRATIVE: CASE EVENT DATE: 20210807
